FAERS Safety Report 4496307-2 (Version None)
Quarter: 2004Q4

REPORT INFORMATION
  Report Type: 
  Country: None (occurrence: None)
  Receive Date: 20041103
  Receipt Date: 20041008
  Transmission Date: 20050328
  Serious: Yes (Hospitalization, Other)
  Sender: FDA-Public Use
  Company Number: 2004-03227

PATIENT
  Age: 61 Year
  Sex: Male

DRUGS (3)
  1. IMMUCYST           (BCG - IT (CONANUGHT) [Suspect]
     Indication: BLADDER CANCER
     Dosage: 81.00 MG B. IN., BLADDER
     Route: 043
     Dates: start: 20040910
  2. TOSUFLOXACIN TOSILATE [Concomitant]
  3. BENEXATE HYDROCHLORIDE BETADEX [Concomitant]

REACTIONS (8)
  - ANAEMIA [None]
  - BLOOD ALBUMIN DECREASED [None]
  - HAEMOGLOBIN DECREASED [None]
  - POLLAKIURIA [None]
  - RED BLOOD CELL COUNT DECREASED [None]
  - URINARY BLADDER HAEMORRHAGE [None]
  - URINARY RETENTION [None]
  - WHITE BLOOD CELL COUNT INCREASED [None]
